FAERS Safety Report 4818297-2 (Version None)
Quarter: 2005Q4

REPORT INFORMATION
  Report Type: 
  Country: None (occurrence: None)
  Receive Date: 20051102
  Receipt Date: 20051024
  Transmission Date: 20060501
  Serious: Yes (Other)
  Sender: FDA-Public Use
  Company Number: IE-BRISTOL-MYERS SQUIBB COMPANY-13155171

PATIENT
  Age: 70 Year
  Sex: Female

DRUGS (3)
  1. CARBOPLATIN [Suspect]
     Indication: METASTASES TO LIVER
  2. DOCETAXEL [Suspect]
     Indication: METASTASES TO LIVER
  3. TRASTUZUMAB [Suspect]

REACTIONS (4)
  - ASTHENIA [None]
  - CEREBELLAR ATAXIA [None]
  - NAUSEA [None]
  - TREMOR [None]
